FAERS Safety Report 8031140-6 (Version None)
Quarter: 2012Q1

REPORT INFORMATION
  Report Type: 
  Country: None (occurrence: None)
  Receive Date: 20120109
  Receipt Date: 20111229
  Transmission Date: 20120608
  Serious: Yes (Death)
  Sender: FDA-Public Use
  Company Number: US-ACTELION-A-NJ2011-56593

PATIENT

DRUGS (3)
  1. OXYGEN [Concomitant]
  2. VENTAVIS [Suspect]
     Indication: PULMONARY ARTERIAL HYPERTENSION
     Dosage: UNK
     Route: 055
     Dates: start: 20100709
  3. REVATIO [Concomitant]

REACTIONS (7)
  - DISEASE PROGRESSION [None]
  - DIZZINESS [None]
  - PULMONARY ARTERIAL HYPERTENSION [None]
  - HYPOTENSION [None]
  - DYSPNOEA [None]
  - HEADACHE [None]
  - INFUSION SITE PAIN [None]
